FAERS Safety Report 10086573 (Version 2)
Quarter: 2014Q2

REPORT INFORMATION
  Report Type: Spontaneous
  Country: JP (occurrence: JP)
  Receive Date: 20140418
  Receipt Date: 20140418
  Transmission Date: 20141212
  Serious: Yes (Hospitalization, Other)
  Sender: FDA-Public Use
  Company Number: JP-PFIZER INC-2014098503

PATIENT
  Age: 67 Year
  Sex: Male

DRUGS (1)
  1. DALACIN [Suspect]
     Dosage: 1350 MG, DAILY
     Route: 048

REACTIONS (1)
  - Spinal cord injury [Recovered/Resolved]
